FAERS Safety Report 25284438 (Version 1)
Quarter: 2025Q2

REPORT INFORMATION
  Report Type: Spontaneous
  Country: US (occurrence: None)
  Receive Date: 20250508
  Receipt Date: 20250508
  Transmission Date: 20250716
  Serious: No
  Sender: FDA-CTU
  Company Number: None

PATIENT
  Age: 75 Year
  Sex: Female

DRUGS (1)
  1. LUMAKRAS [Suspect]
     Active Substance: SOTORASIB
     Indication: Lung neoplasm malignant
     Dosage: 3  DF DAILY ORAL
     Route: 048
     Dates: start: 20241215, end: 20250417

REACTIONS (2)
  - Hepatic enzyme increased [None]
  - Adverse drug reaction [None]

NARRATIVE: CASE EVENT DATE: 20250505
